FAERS Safety Report 5833996-1 (Version None)
Quarter: 2008Q3

REPORT INFORMATION
  Report Type: 
  Country: None (occurrence: None)
  Receive Date: 20080801
  Receipt Date: 20080801
  Transmission Date: 20090109
  Serious: No
  Sender: FDA-Public Use
  Company Number: None

PATIENT
  Sex: Male
  Weight: 1 kg

DRUGS (1)
  1. MIDAZOLAM HCL [Suspect]
     Indication: DRUG EFFECT DECREASED
     Dosage: 4 TO 10MG REPEATED 0.5-1MG IV BOLUS
     Route: 040
     Dates: start: 20080722, end: 20080729

REACTIONS (2)
  - PHARMACEUTICAL PRODUCT COMPLAINT [None]
  - UNEVALUABLE EVENT [None]
